FAERS Safety Report 11042819 (Version 3)
Quarter: 2015Q3

REPORT INFORMATION
  Report Type: Spontaneous
  Country: IT (occurrence: IT)
  Receive Date: 20150417
  Receipt Date: 20150924
  Transmission Date: 20151125
  Serious: Yes (Hospitalization)
  Sender: FDA-Public Use
  Company Number: IT-ROCHE-1564434

PATIENT
  Age: 79 Year
  Sex: Female

DRUGS (6)
  1. OMEPRAZOLE. [Concomitant]
     Active Substance: OMEPRAZOLE
  2. CARDIOASPIRIN [Concomitant]
     Active Substance: ASPIRIN
     Dosage: 100 MG GASTRO-RESISTANT TABLETS 30 TABLETS
     Route: 048
  3. FUROSEMIDE. [Concomitant]
     Active Substance: FUROSEMIDE
  4. CARVEDILOL. [Concomitant]
     Active Substance: CARVEDILOL
  5. FOSTER (ITALY) [Concomitant]
     Dosage: 100 MCG PER 6 MCG PER ACTUATION OF PRESSURISED SOLN (1 PRESSURISED CONTAINER OF 120 PUFF)
     Route: 045
  6. ROCEFIN [Suspect]
     Active Substance: CEFTRIAXONE SODIUM
     Indication: PNEUMONITIS
     Dosage: 1G PER 3.5 ML (1VIAL) POWDER WITH 3.5 ML (1 VIAL) SOLVENT
     Route: 030
     Dates: start: 20150320, end: 20150328

REACTIONS (2)
  - Hypokalaemia [Recovering/Resolving]
  - Clostridium colitis [Recovering/Resolving]

NARRATIVE: CASE EVENT DATE: 20150327
